FAERS Safety Report 5191366-6 (Version None)
Quarter: 2006Q4

REPORT INFORMATION
  Report Type: 
  Country: None (occurrence: None)
  Receive Date: 20061219
  Receipt Date: 20061206
  Transmission Date: 20070319
  Serious: Yes (Other)
  Sender: FDA-Public Use
  Company Number: NLWYE424406NOV06

PATIENT
  Age: 38 Year
  Sex: Male

DRUGS (3)
  1. EFFEXOR XR [Suspect]
     Indication: DYSTHYMIC DISORDER
     Dosage: 75 MG 1X PER 1 DAY
     Dates: start: 20050101
  2. BUSPIRONE HCL [Suspect]
     Dosage: 5 MG 2X PER 1 DAY ORAL
     Route: 048
     Dates: start: 20061019, end: 20061024
  3. CLONAZEPAM [Suspect]
     Dosage: 2 MG 2X PER 1 DAY
     Dates: start: 20050101

REACTIONS (6)
  - DISTURBANCE IN ATTENTION [None]
  - FEELING ABNORMAL [None]
  - GAIT DISTURBANCE [None]
  - HEADACHE [None]
  - TINNITUS [None]
  - TREMOR [None]
